FAERS Safety Report 9263909 (Version 1)
Quarter: 2013Q2

REPORT INFORMATION
  Report Type: Spontaneous
  Country: US (occurrence: None)
  Receive Date: 20130429
  Receipt Date: 20130429
  Transmission Date: 20140414
  Serious: Yes (Other)
  Sender: FDA-Public Use
  Company Number: None

PATIENT
  Age: 58 Year
  Sex: Male
  Weight: 131.54 kg

DRUGS (2)
  1. ROPINIROLE [Suspect]
     Indication: PARKINSON^S DISEASE
     Dosage: 1 QAM
     Route: 048
     Dates: start: 20120601, end: 20130412
  2. ROPINIROLE [Suspect]
     Dosage: 1 QAM
     Route: 048
     Dates: start: 20130412, end: 20130418

REACTIONS (4)
  - Dyskinesia [None]
  - Nausea [None]
  - Product quality issue [None]
  - Product substitution issue [None]
